FAERS Safety Report 11580689 (Version 1)
Quarter: 2015Q3

REPORT INFORMATION
  Report Type: Spontaneous
  Country: PT (occurrence: PT)
  Receive Date: 20150930
  Receipt Date: 20150930
  Transmission Date: 20151125
  Serious: Yes (Other)
  Sender: FDA-Public Use
  Company Number: PHHY2015PT115895

PATIENT
  Age: 50 Year
  Sex: Male

DRUGS (2)
  1. VOLTAREN [Suspect]
     Active Substance: DICLOFENAC SODIUM
     Indication: GOUT
     Dosage: UNK
     Route: 048
     Dates: start: 20141030
  2. ADALGUR N [Suspect]
     Active Substance: ACETAMINOPHEN\THIOCOLCHICOSIDE
     Indication: GOUT
     Route: 048
     Dates: start: 20141030

REACTIONS (3)
  - Laryngeal oedema [Recovered/Resolved]
  - Aphonia [Recovered/Resolved]
  - Dyspnoea [Recovered/Resolved]

NARRATIVE: CASE EVENT DATE: 20141102
